FAERS Safety Report 4684045-2 (Version None)
Quarter: 2005Q2

REPORT INFORMATION
  Report Type: 
  Country: None (occurrence: None)
  Receive Date: 20050602
  Receipt Date: 20050121
  Transmission Date: 20051028
  Serious: No
  Sender: FDA-Public Use
  Company Number: USA050188888

PATIENT
  Age: 36 Year
  Sex: Female

DRUGS (3)
  1. CYMBALTA [Suspect]
     Indication: DEPRESSION
     Dosage: 70 MG DAY
  2. KLONOPIN [Concomitant]
  3. ACIPHEX (RABEPRAZOLE SODIU [Concomitant]

REACTIONS (2)
  - AMENORRHOEA [None]
  - PRESCRIBED OVERDOSE [None]
